FAERS Safety Report 11704939 (Version 1)
Quarter: 2015Q4

REPORT INFORMATION
  Report Type: Spontaneous
  Country: PE (occurrence: PE)
  Receive Date: 20151106
  Receipt Date: 20151106
  Transmission Date: 20160304
  Serious: Yes (Death, Hospitalization)
  Sender: FDA-Public Use
  Company Number: PE-TEVA-606141ISR

PATIENT
  Age: 63 Year
  Sex: Female

DRUGS (4)
  1. KETOROLAC [Concomitant]
     Active Substance: KETOROLAC\KETOROLAC TROMETHAMINE
     Indication: ANALGESIC THERAPY
     Dosage: THE PATIENT USED THIS TREATMENT 5 YEARS AGO, DEPENDING ON THE PAIN
     Route: 048
     Dates: end: 201504
  2. METHOTREXATE [Concomitant]
     Active Substance: METHOTREXATE
     Dosage: THE PATIENT INITIATED THE TREATMENT 5 YEARS AGO, 2 TABLETS PER WEEK
     Route: 048
     Dates: start: 20150420
  3. FILARTROS [Suspect]
     Active Substance: LEFLUNOMIDE
     Indication: ARTHRITIS
     Dosage: 20 MILLIGRAM DAILY; THE PATIENT USED THE MENTIONED DOSE SINCE 5 YEARS
     Route: 048
     Dates: end: 20150420
  4. PREDNISONE. [Concomitant]
     Active Substance: PREDNISONE
     Route: 048
     Dates: end: 201504

REACTIONS (4)
  - Pneumonia [Recovered/Resolved]
  - Vomiting [Not Recovered/Not Resolved]
  - Cough [Not Recovered/Not Resolved]
  - Lung neoplasm malignant [Fatal]

NARRATIVE: CASE EVENT DATE: 201504
